FAERS Safety Report 5419458-4 (Version None)
Quarter: 2007Q3

REPORT INFORMATION
  Report Type: 
  Country: None (occurrence: None)
  Receive Date: 20070820
  Receipt Date: 20070813
  Transmission Date: 20080115
  Serious: Yes (Life-Threatening, Hospitalization)
  Sender: FDA-Public Use
  Company Number: B0483643A

PATIENT
  Age: 43 Year
  Sex: Female

DRUGS (3)
  1. AUGMENTIN '125' [Suspect]
     Dosage: 1UNIT SINGLE DOSE
     Route: 048
     Dates: start: 20061029, end: 20061029
  2. ADVIL LIQUI-GELS [Concomitant]
     Route: 065
  3. CEFUROXIME [Concomitant]
     Route: 065

REACTIONS (6)
  - ANAPHYLACTIC REACTION [None]
  - ANGIOEDEMA [None]
  - ASTHENIA [None]
  - HYPERSENSITIVITY [None]
  - LOSS OF CONSCIOUSNESS [None]
  - URTICARIA [None]
